FAERS Safety Report 4823914-7 (Version None)
Quarter: 2005Q4

REPORT INFORMATION
  Report Type: 
  Country: None (occurrence: None)
  Receive Date: 20051109
  Receipt Date: 20051031
  Transmission Date: 20060501
  Serious: Yes (Death)
  Sender: FDA-Public Use
  Company Number: US-AVENTIS-200518817US

PATIENT
  Sex: Female

DRUGS (7)
  1. LOVENOX [Suspect]
     Dates: start: 20050601, end: 20051001
  2. ZOLOFT [Concomitant]
     Dosage: DOSE: NOT REPORTED
     Dates: end: 20051001
  3. MARINOL [Concomitant]
     Dosage: DOSE: NOT PROVIDED
     Dates: end: 20051001
  4. HYDROCODONE [Concomitant]
     Dosage: DOSE: NOT PROVIDED
     Dates: end: 20051001
  5. NEXIUM [Concomitant]
     Dosage: DOSE: NOT PROVIDED
     Dates: end: 20051001
  6. AMBIEN [Concomitant]
     Dosage: DOSE: NOT PROVIDED
     Dates: end: 20051001
  7. COMPAZINE [Concomitant]
     Dosage: DOSE: NOT PROVIDED
     Dates: end: 20051001

REACTIONS (1)
  - DEATH [None]
